FAERS Safety Report 5716588-4 (Version None)
Quarter: 2008Q2

REPORT INFORMATION
  Report Type: 
  Country: None (occurrence: None)
  Receive Date: 20080424
  Receipt Date: 20080417
  Transmission Date: 20081010
  Serious: Yes (Hospitalization)
  Sender: FDA-Public Use
  Company Number: US-ELI_LILLY_AND_COMPANY-US200803001657

PATIENT
  Sex: Female
  Weight: 136.5 kg

DRUGS (21)
  1. BYETTA [Suspect]
     Indication: TYPE 2 DIABETES MELLITUS
     Dosage: 5 UG, 2/D
     Route: 058
     Dates: start: 20051003, end: 20051107
  2. BYETTA [Suspect]
     Dosage: 10 UG, 2/D
     Route: 058
     Dates: start: 20051107, end: 20051201
  3. BYETTA [Suspect]
     Dosage: 5 UG, 2/D
     Route: 058
     Dates: start: 20080121, end: 20080219
  4. BYETTA [Suspect]
     Dosage: 10 UG, 2/D
     Route: 058
     Dates: start: 20080220
  5. GLIPIZIDE [Concomitant]
     Indication: TYPE 2 DIABETES MELLITUS
     Dosage: 10 MG, 2/D
     Route: 048
  6. ISOSORBIDE MONONITRATE [Concomitant]
     Indication: ANGINA PECTORIS
     Dosage: 120 MG, DAILY (1/D)
     Route: 048
  7. ATACAND [Concomitant]
     Indication: BLOOD PRESSURE
     Dosage: 32 MG, EACH EVENING
  8. LIPITOR [Concomitant]
     Indication: BLOOD CHOLESTEROL
     Dosage: 40 MG, EACH EVENING
  9. LIPITOR [Concomitant]
     Dosage: 20 MG, EACH EVENING
     Route: 048
     Dates: start: 20080121
  10. AVALIDE [Concomitant]
     Dosage: 1 D/F, DAILY (1/D)
     Route: 048
     Dates: start: 20051003
  11. OMEGA 3 FISH OIL [Concomitant]
     Dosage: 1000 MG, DAILY (1/D)
  12. MULTI-VITAMIN [Concomitant]
     Dosage: UNK, DAILY (1/D)
     Route: 048
  13. VITAMIN E [Concomitant]
  14. ASPIRIN [Concomitant]
     Dosage: 2 D/F, DAILY (1/D)
     Route: 048
  15. ASCORBIC ACID [Concomitant]
  16. EXCEDRIN (MIGRAINE) [Concomitant]
     Dosage: 2 D/F, 2/D
     Route: 048
  17. GLUCOSAMINE [Concomitant]
     Dosage: 2 D/F, EACH MORNING
     Route: 048
  18. AVANDAMET [Concomitant]
     Dosage: UNK MG, DAILY (1/D)
     Route: 048
     Dates: end: 20051003
  19. GLUCOPHAGE [Concomitant]
     Dosage: 500 MG, 2/D
     Route: 048
     Dates: start: 20051107, end: 20051205
  20. CADUET [Concomitant]
     Dosage: UNK MG, DAILY (1/D)
     Route: 048
     Dates: end: 20051107
  21. AMARYL [Concomitant]
     Dosage: 4 MG, DAILY (1/D)
     Route: 048
     Dates: end: 20051107

REACTIONS (6)
  - BLOOD GLUCOSE INCREASED [None]
  - CARDIAC FAILURE [None]
  - DECREASED APPETITE [None]
  - DRUG INEFFECTIVE [None]
  - NAUSEA [None]
  - WEIGHT DECREASED [None]
